FAERS Safety Report 10890341 (Version 1)
Quarter: 2015Q1

REPORT INFORMATION
  Report Type: Spontaneous
  Country: US (occurrence: US)
  Receive Date: 20150305
  Receipt Date: 20150305
  Transmission Date: 20150721
  Serious: No
  Sender: FDA-Public Use
  Company Number: US-009507513-1502USA012114

PATIENT
  Age: 34 Year
  Sex: Female

DRUGS (5)
  1. K-DUR [Suspect]
     Active Substance: POTASSIUM CHLORIDE
     Indication: MINERAL DEFICIENCY
     Dosage: 20 MEQ, QD
     Route: 048
     Dates: start: 2012
  2. NONSTEROIDAL ANTI-INFLAMMATORY DRUG (UNSPECIFIED) [Concomitant]
     Active Substance: UNSPECIFIED INGREDIENT
  3. K-DUR [Suspect]
     Active Substance: POTASSIUM CHLORIDE
     Dosage: UNK
     Route: 048
     Dates: start: 2012, end: 2012
  4. STRUMAZOL [Concomitant]
     Route: 048
  5. PROPRANOLOL HYDROCHLORIDE. [Concomitant]
     Active Substance: PROPRANOLOL HYDROCHLORIDE
     Route: 048

REACTIONS (1)
  - Asthenia [Unknown]

NARRATIVE: CASE EVENT DATE: 2012
